FAERS Safety Report 15974750 (Version 3)
Quarter: 2019Q1

REPORT INFORMATION
  Report Type: Spontaneous
  Country: US (occurrence: US)
  Receive Date: 20190218
  Receipt Date: 20190225
  Transmission Date: 20190418
  Serious: Yes (Other)
  Sender: FDA-Public Use
  Company Number: US-AMGEN INC.-USASP2019023057

PATIENT
  Age: 40 Year
  Sex: Female
  Weight: 83.9 kg

DRUGS (4)
  1. PROZAC [Concomitant]
     Active Substance: FLUOXETINE HYDROCHLORIDE
     Indication: DEPRESSION
     Dosage: UNK UNK, QD (50 UNIT NOT PROVIDED)
     Dates: start: 2009
  2. LISINOPRIL. [Concomitant]
     Active Substance: LISINOPRIL
     Indication: DEPRESSION
     Dosage: UNK UNK, QD (40 UNIT NOT PROVIDED)
     Dates: start: 2009
  3. METOPROLOL. [Concomitant]
     Active Substance: METOPROLOL
     Indication: HYPERTENSION
     Dosage: UNK (25 UNIT NOT PROVIDED), BID
     Dates: start: 2016
  4. AIMOVIG [Suspect]
     Active Substance: ERENUMAB-AOOE
     Indication: MIGRAINE WITHOUT AURA
     Dosage: 140 MG, QMO
     Route: 058
     Dates: start: 20180801, end: 20181001

REACTIONS (3)
  - Vitamin B12 deficiency [Unknown]
  - Arthralgia [Not Recovered/Not Resolved]
  - Alopecia [Not Recovered/Not Resolved]

NARRATIVE: CASE EVENT DATE: 201810
